FAERS Safety Report 9230078 (Version 2)
Quarter: 2013Q2

REPORT INFORMATION
  Report Type: Spontaneous
  Country: TR (occurrence: TR)
  Receive Date: 20130415
  Receipt Date: 20130429
  Transmission Date: 20140414
  Serious: Yes (Other)
  Sender: FDA-Public Use
  Company Number: TR-JNJFOC-20130403076

PATIENT
  Age: 28 Year
  Sex: Female

DRUGS (3)
  1. RISPERIDONE [Suspect]
     Indication: SCHIZOPHRENIA
     Route: 065
  2. AKINETON [Suspect]
     Indication: SCHIZOPHRENIA
     Dosage: FOR 2 YEARS
     Route: 065
  3. AKINETON [Suspect]
     Indication: SCHIZOPHRENIA
     Dosage: FOR THE LAST 2 YEARS
     Route: 065

REACTIONS (8)
  - Anhedonia [Recovering/Resolving]
  - Insomnia [Recovering/Resolving]
  - Decreased appetite [Recovering/Resolving]
  - Delusion of reference [Not Recovered/Not Resolved]
  - Dyskinesia [Recovering/Resolving]
  - Schizophrenia, paranoid type [Recovering/Resolving]
  - Major depression [Recovering/Resolving]
  - Movement disorder [Recovering/Resolving]
